FAERS Safety Report 20490434 (Version 1)
Quarter: 2022Q1

REPORT INFORMATION
  Report Type: Spontaneous
  Country: US (occurrence: None)
  Receive Date: 20220217
  Receipt Date: 20220217
  Transmission Date: 20220423
  Serious: Yes (Hospitalization)
  Sender: FDA-Public Use
  Company Number: None

PATIENT
  Age: 81 Year
  Sex: Male
  Weight: 73.71 kg

DRUGS (22)
  1. METHOTREXATE (METHOTREXATE SODIUM) [Suspect]
     Active Substance: METHOTREXATE SODIUM
     Indication: Acute lymphocytic leukaemia
     Dosage: FREQUENCY : WEEKLY;?
     Route: 048
  2. MERCAPTOPURINE [Suspect]
     Active Substance: MERCAPTOPURINE
     Indication: Acute lymphocytic leukaemia
     Dosage: FREQUENCY : 3 TIMES A DAY;?
     Route: 048
  3. ACETAMINOPHEN [Concomitant]
     Active Substance: ACETAMINOPHEN
  4. ACYCLOVIR (SYSTEMIC) [Concomitant]
  5. COVID-19 VACCINE (MRNA) [Concomitant]
  6. DIPHENHYDRAMINE (SYSTEMIC) [Concomitant]
  7. FAMOTIDINE [Concomitant]
     Active Substance: FAMOTIDINE
  8. FLUCONAZOLE [Concomitant]
     Active Substance: FLUCONAZOLE
  9. FLUDROCORTISONE [Concomitant]
     Active Substance: FLUDROCORTISONE
  10. FOLIC ACID [Concomitant]
     Active Substance: FOLIC ACID
  11. HEPARIN [Concomitant]
     Active Substance: HEPARIN SODIUM
  12. LEVOFLOXACIN (SYSTEMIC) [Concomitant]
  13. MERCAPTOPURINE [Concomitant]
     Active Substance: MERCAPTOPURINE
  14. METHOTREXATE [Concomitant]
     Active Substance: METHOTREXATE
  15. METHYLPREDNISOLONE [Concomitant]
     Active Substance: METHYLPREDNISOLONE
  16. MIDODRINE [Concomitant]
     Active Substance: MIDODRINE
  17. NEULASTA [Concomitant]
     Active Substance: PEGFILGRASTIM
  18. K PHOS NEUTRAL [Concomitant]
     Active Substance: POTASSIUM PHOSPHATE, MONOBASIC\SODIUM PHOSPHATE, DIBASIC, ANHYDROUS\SODIUM PHOSPHATE, MONOBASIC, MON
  19. POTASSIUM CHLORIDE [Concomitant]
     Active Substance: POTASSIUM CHLORIDE
  20. PREDNISONE [Concomitant]
     Active Substance: PREDNISONE
  21. PROCHLORPERAZINE [Concomitant]
     Active Substance: PROCHLORPERAZINE
  22. TAMSULOSIN [Concomitant]
     Active Substance: TAMSULOSIN

REACTIONS (3)
  - Chest pain [None]
  - Pneumonia [None]
  - Infection [None]
